FAERS Safety Report 5164684-5 (Version None)
Quarter: 2006Q4

REPORT INFORMATION
  Report Type: 
  Country: None (occurrence: None)
  Receive Date: 20061205
  Receipt Date: 20061127
  Transmission Date: 20070319
  Serious: Yes (Hospitalization, Other)
  Sender: FDA-Public Use
  Company Number: US-ELI_LILLY_AND_COMPANY-US200611004998

PATIENT
  Age: 72 Year
  Sex: Female

DRUGS (10)
  1. HUMALOG MIX 75/25 [Suspect]
     Indication: DIABETES MELLITUS NON-INSULIN-DEPENDENT
     Dosage: UNK, UNKNOWN
     Dates: start: 20060401, end: 20061118
  2. VICODIN [Concomitant]
     Indication: BACK PAIN
     Dosage: UNK UNK, AS NEEDED
  3. SENOKOT [Concomitant]
     Indication: LAXATIVE SUPPORTIVE CARE
     Dosage: UNK UNK, EACH EVENING
  4. BUPROPION HCL [Concomitant]
     Indication: SMOKING CESSATION THERAPY
     Dosage: 150 MG, 3/D
  5. BENTYL [Concomitant]
     Indication: GASTRIC DISORDER
     Dosage: 10 MG, 3/D
  6. LASIX [Concomitant]
     Indication: FLUID RETENTION
     Dosage: 20 MG, 2/D
  7. ASPIRIN [Concomitant]
     Indication: PROPHYLAXIS
     Dosage: 81 MG, DAILY (1/D)
  8. NEXIUM [Concomitant]
     Indication: GASTROOESOPHAGEAL REFLUX DISEASE
     Dosage: 40 MG, 3/D
  9. LEVOXYL [Concomitant]
     Indication: THYROID DISORDER
     Dosage: .50 MG, DAILY (1/D)
     Dates: start: 20060101
  10. MIRALAX [Concomitant]
     Indication: LAXATIVE SUPPORTIVE CARE
     Dosage: 17 G, EACH EVENING

REACTIONS (7)
  - ABDOMINAL PAIN UPPER [None]
  - DYSPNOEA [None]
  - INSOMNIA [None]
  - INTESTINAL FUNCTIONAL DISORDER [None]
  - MYOCARDIAL INFARCTION [None]
  - PHARMACEUTICAL PRODUCT COMPLAINT [None]
  - PULMONARY OEDEMA [None]
